FAERS Safety Report 11931022 (Version 7)
Quarter: 2018Q1

REPORT INFORMATION
  Report Type: Report from Study
  Country: US (occurrence: US)
  Receive Date: 20160120
  Receipt Date: 20180228
  Transmission Date: 20180508
  Serious: Yes (Other)
  Sender: FDA-Public Use
  Company Number: US-INCYTE CORPORATION-2015IN004438

PATIENT

DRUGS (40)
  1. JAKAFI [Suspect]
     Active Substance: RUXOLITINIB
     Indication: POLYCYTHAEMIA VERA
     Dosage: 10 MG, BID
     Route: 048
     Dates: start: 20150709, end: 20150925
  2. JAKAFI [Suspect]
     Active Substance: RUXOLITINIB
     Dosage: 15 MG, BID
     Route: 048
  3. JAKAFI [Suspect]
     Active Substance: RUXOLITINIB
     Dosage: 10 MG, BID
     Route: 048
     Dates: start: 20161103, end: 20170106
  4. JAKAFI [Suspect]
     Active Substance: RUXOLITINIB
     Dosage: 15 MG, QD
     Route: 048
     Dates: start: 20170103
  5. STIOLTO RESPIMAT [Concomitant]
     Active Substance: OLODATEROL HYDROCHLORIDE\TIOTROPIUM BROMIDE MONOHYDRATE
     Indication: CHRONIC OBSTRUCTIVE PULMONARY DISEASE
     Dosage: 2 PUFF, QD
     Dates: start: 20151124
  6. ZANTAC [Concomitant]
     Active Substance: RANITIDINE HYDROCHLORIDE
     Indication: GASTROOESOPHAGEAL REFLUX DISEASE
     Dosage: 300 MG, QD
     Dates: start: 20150507
  7. BACTROBAN [Concomitant]
     Active Substance: MUPIROCIN\MUPIROCIN CALCIUM
     Indication: SKIN LESION
     Dosage: 1 G, BID
     Dates: start: 20160510, end: 20160624
  8. TESSALON [Concomitant]
     Active Substance: BENZONATATE
     Indication: CHRONIC OBSTRUCTIVE PULMONARY DISEASE
     Dosage: 100 MG, TID
     Dates: start: 20160510, end: 20160531
  9. JAKAFI [Suspect]
     Active Substance: RUXOLITINIB
     Dosage: 10 MG, BID
     Route: 048
     Dates: start: 20151113, end: 20151221
  10. JAKAFI [Suspect]
     Active Substance: RUXOLITINIB
     Dosage: 10 MG, TID
     Route: 048
  11. JAKAFI [Suspect]
     Active Substance: RUXOLITINIB
     Dosage: 10 MG, TID
     Route: 048
     Dates: start: 20170106
  12. ALBUTEROL. [Concomitant]
     Active Substance: ALBUTEROL
     Indication: CHRONIC OBSTRUCTIVE PULMONARY DISEASE
     Dosage: 2 PUFF, PRN
     Dates: start: 20141027
  13. WELLBUTRIN [Concomitant]
     Active Substance: BUPROPION HYDROCHLORIDE
     Indication: PRODUCT USED FOR UNKNOWN INDICATION
  14. BENZONATATE. [Concomitant]
     Active Substance: BENZONATATE
     Indication: COUGH
     Dosage: 100 MG, PRN
     Dates: start: 20150705
  15. DOXYCYCLINE. [Concomitant]
     Active Substance: DOXYCYCLINE
     Indication: CHRONIC OBSTRUCTIVE PULMONARY DISEASE
     Dosage: 100 MG, BID
     Dates: start: 20160510, end: 20160520
  16. PREDNISONE. [Concomitant]
     Active Substance: PREDNISONE
     Indication: CHRONIC OBSTRUCTIVE PULMONARY DISEASE
     Dosage: 20 MG, QD
     Dates: start: 20160510, end: 20160517
  17. JAKAFI [Suspect]
     Active Substance: RUXOLITINIB
     Dosage: 15 MG, BID
     Route: 048
     Dates: start: 20151221, end: 20160328
  18. CEFAZOLIN [Concomitant]
     Active Substance: CEFAZOLIN
     Indication: PRODUCT USED FOR UNKNOWN INDICATION
  19. CLOTRIMAZOLE. [Concomitant]
     Active Substance: CLOTRIMAZOLE
     Indication: OROPHARYNGITIS FUNGAL
     Dosage: 10 MG, QID
     Dates: start: 20160302, end: 20160508
  20. JAKAFI [Suspect]
     Active Substance: RUXOLITINIB
     Dosage: 10 MG, QD
     Route: 048
     Dates: start: 20151004, end: 20151112
  21. JAKAFI [Suspect]
     Active Substance: RUXOLITINIB
     Dosage: 10 MG, BID
     Route: 048
     Dates: start: 20170106, end: 20170306
  22. JAKAFI [Suspect]
     Active Substance: RUXOLITINIB
     Dosage: 15 MG, BID
     Route: 048
     Dates: start: 20170406
  23. BABY ASPIRIN [Concomitant]
     Active Substance: ASPIRIN
     Indication: PRODUCT USED FOR UNKNOWN INDICATION
  24. TYLENOL [Concomitant]
     Active Substance: ACETAMINOPHEN
     Indication: PRODUCT USED FOR UNKNOWN INDICATION
  25. ASPIRIN. [Suspect]
     Active Substance: ASPIRIN
     Indication: MICROEMBOLISM
     Dosage: 325 MG, QD
     Dates: start: 20160705
  26. PANTOPRAZOLE [Concomitant]
     Active Substance: PANTOPRAZOLE
     Indication: GASTROOESOPHAGEAL REFLUX DISEASE
     Dosage: 40 MG, QD
     Dates: start: 20150424
  27. VIAGRA [Concomitant]
     Active Substance: SILDENAFIL CITRATE
     Indication: ERECTILE DYSFUNCTION
     Dosage: 100 MG, PRN
     Dates: start: 20150604
  28. MULTIVITAMIN                       /07504101/ [Concomitant]
     Active Substance: VITAMINS
     Indication: PRODUCT USED FOR UNKNOWN INDICATION
  29. JAKAFI [Suspect]
     Active Substance: RUXOLITINIB
     Dosage: 10 MG, BID
     Route: 048
     Dates: start: 20161216
  30. ADVAIR HFA [Concomitant]
     Active Substance: FLUTICASONE PROPIONATE\SALMETEROL XINAFOATE
     Indication: CHRONIC OBSTRUCTIVE PULMONARY DISEASE
     Dosage: 1 PUFF, BID
     Dates: start: 20141027, end: 20151124
  31. DIFLUCAN [Concomitant]
     Active Substance: FLUCONAZOLE
     Indication: BIOPSY
     Dosage: 200 MG, QD
     Dates: start: 20150925, end: 20151104
  32. JAKAFI [Suspect]
     Active Substance: RUXOLITINIB
     Dosage: 10 MG, BID
     Route: 048
     Dates: start: 201611
  33. JAKAFI [Suspect]
     Active Substance: RUXOLITINIB
     Dosage: 15 MG, BID
     Route: 048
     Dates: start: 20160516, end: 20161103
  34. JAKAFI [Suspect]
     Active Substance: RUXOLITINIB
     Dosage: 15 MG, QD
     Dates: start: 20170307, end: 20170405
  35. JAKAFI [Suspect]
     Active Substance: RUXOLITINIB
     Dosage: 15 MG, BID
     Route: 048
  36. BUPROPION                          /00700502/ [Concomitant]
     Active Substance: BUPROPION HYDROCHLORIDE
     Indication: SMOKING CESSATION THERAPY
     Dosage: 150 MG, BID
     Dates: start: 20150604
  37. DIFLUCAN [Concomitant]
     Active Substance: FLUCONAZOLE
     Indication: LARYNGITIS FUNGAL
     Dosage: 100 MG, QD
     Dates: start: 20170307, end: 20170405
  38. ATIVAN [Concomitant]
     Active Substance: LORAZEPAM
     Indication: ANXIETY
     Dosage: 0.5 MG, PRN
     Dates: start: 2014
  39. PROAIR HFA [Concomitant]
     Active Substance: ALBUTEROL SULFATE
     Indication: PRODUCT USED FOR UNKNOWN INDICATION
  40. VITAMIN D                          /00107901/ [Concomitant]
     Active Substance: ERGOCALCIFEROL
     Indication: PRODUCT USED FOR UNKNOWN INDICATION

REACTIONS (22)
  - Diarrhoea [Recovered/Resolved]
  - Platelet count increased [Recovering/Resolving]
  - Chronic obstructive pulmonary disease [Recovered/Resolved]
  - Seborrhoeic keratosis [Not Recovered/Not Resolved]
  - Immune system disorder [Unknown]
  - Blood count abnormal [Unknown]
  - Dizziness [Recovered/Resolved]
  - Microembolism [Not Recovered/Not Resolved]
  - Skin ulcer [Not Recovered/Not Resolved]
  - Somnolence [Unknown]
  - Neck pain [Recovered/Resolved]
  - Fatigue [Not Recovered/Not Resolved]
  - Drug ineffective [Unknown]
  - Laryngitis fungal [Not Recovered/Not Resolved]
  - Drug dose omission [Unknown]
  - Bone pain [Recovered/Resolved]
  - Presyncope [Recovered/Resolved]
  - Contusion [Recovered/Resolved]
  - Bronchitis [Recovered/Resolved]
  - Halo vision [Recovered/Resolved]
  - Syncope [Recovered/Resolved]
  - Increased tendency to bruise [Unknown]

NARRATIVE: CASE EVENT DATE: 20150910
